FAERS Safety Report 25080908 (Version 2)
Quarter: 2025Q2

REPORT INFORMATION
  Report Type: Spontaneous
  Country: GB (occurrence: GB)
  Receive Date: 20250315
  Receipt Date: 20250402
  Transmission Date: 20250717
  Serious: Yes (Disabling, Other)
  Sender: AUROBINDO
  Company Number: GB-MHRA-MED-202502280815435740-VZWNC

PATIENT
  Age: 44 Year
  Sex: Male
  Weight: 73 kg

DRUGS (2)
  1. PRAMIPEXOLE [Suspect]
     Active Substance: PRAMIPEXOLE
     Indication: Restless legs syndrome
     Dosage: 1.76 MILLIGRAM, ONCE A DAY (2 X 0.88MG TABLETS AT NIGHT)
     Route: 065
     Dates: start: 20040601, end: 20210601
  2. CODEINE [Concomitant]
     Active Substance: CODEINE
     Indication: Product used for unknown indication
     Route: 065

REACTIONS (6)
  - Restless leg augmentation syndrome [Recovered/Resolved with Sequelae]
  - Medication error [Unknown]
  - Mental impairment [Unknown]
  - Dopamine agonist withdrawal syndrome [Unknown]
  - Emotional disorder [Unknown]
  - Impulse-control disorder [Unknown]

NARRATIVE: CASE EVENT DATE: 20070701
